FAERS Safety Report 9261194 (Version 2)
Quarter: 2013Q3

REPORT INFORMATION
  Report Type: Spontaneous
  Country: CA (occurrence: CA)
  Receive Date: 20130429
  Receipt Date: 20130918
  Transmission Date: 20140515
  Serious: Yes (Disabling)
  Sender: FDA-Public Use
  Company Number: CA-PFIZER INC-2013130057

PATIENT
  Age: 78 Year
  Sex: Female
  Weight: 76 kg

DRUGS (3)
  1. TECTA [Suspect]
     Indication: ULCER
     Dosage: 40 MG, 1X/DAY
     Route: 048
     Dates: start: 20120720, end: 20120910
  2. ATIVAN [Concomitant]
     Dosage: UNK
     Route: 060
  3. SALBUTAMOL [Concomitant]
     Dosage: UNK

REACTIONS (3)
  - Photophobia [Not Recovered/Not Resolved]
  - Vision blurred [Not Recovered/Not Resolved]
  - Visual impairment [Not Recovered/Not Resolved]
